FAERS Safety Report 5943120-2 (Version None)
Quarter: 2008Q4

REPORT INFORMATION
  Report Type: 
  Country: None (occurrence: None)
  Receive Date: 20081106
  Receipt Date: 20081105
  Transmission Date: 20090506
  Serious: Yes (Other)
  Sender: FDA-Public Use
  Company Number: FR-CELGENEUS-056-C5013-07110778

PATIENT
  Sex: Male
  Weight: 52 kg

DRUGS (2)
  1. REVLIMID [Suspect]
     Indication: NON-HODGKIN'S LYMPHOMA
     Route: 048
     Dates: start: 20071002
  2. ZYLORIC [Concomitant]
     Indication: PROPHYLAXIS
     Route: 048
     Dates: start: 20071002, end: 20071030

REACTIONS (1)
  - PSORIASIS [None]
